FAERS Safety Report 5359255-1 (Version None)
Quarter: 2007Q2

REPORT INFORMATION
  Report Type: 
  Country: None (occurrence: None)
  Receive Date: 20070615
  Receipt Date: 20070608
  Transmission Date: 20071010
  Serious: Yes (Hospitalization)
  Sender: FDA-Public Use
  Company Number: BR-AVENTIS-200710089GDDC

PATIENT
  Age: 16 Year
  Sex: Female
  Weight: 65 kg

DRUGS (10)
  1. LANTUS [Suspect]
     Dosage: DOSE: 38 AM + PM
     Route: 058
  2. LANTUS [Suspect]
     Dosage: DOSE: 38 AM + PM
     Route: 058
  3. LANTUS [Suspect]
     Route: 058
     Dates: start: 20070601
  4. LANTUS [Suspect]
     Route: 058
     Dates: start: 20070601
  5. OPTIPEN (INSULIN PUMP) [Suspect]
  6. HUMALOG [Concomitant]
     Dosage: DOSE: 2 - 2 - 4
  7. METFORMIN HCL [Concomitant]
     Dosage: DOSE QUANTITY: 2
     Route: 048
     Dates: end: 20070101
  8. METFORMIN HCL [Concomitant]
     Dosage: DOSE QUANTITY: 3
     Route: 048
  9. GINKO BILOBA [Concomitant]
     Dates: start: 20060101
  10. FLUOXETINE [Concomitant]
     Indication: DEPRESSION
     Dates: start: 20050101

REACTIONS (10)
  - AMNESIA [None]
  - BLOOD GLUCOSE FLUCTUATION [None]
  - CONVULSION [None]
  - HYPERGLYCAEMIA [None]
  - HYPOGLYCAEMIA [None]
  - HYPOGLYCAEMIC UNCONSCIOUSNESS [None]
  - MOUTH HAEMORRHAGE [None]
  - TACHYCARDIA [None]
  - VOMITING [None]
  - WEIGHT INCREASED [None]
